FAERS Safety Report 7094764-9 (Version None)
Quarter: 2010Q4

REPORT INFORMATION
  Report Type: 
  Country: None (occurrence: None)
  Receive Date: 20101110
  Receipt Date: 20101108
  Transmission Date: 20110411
  Serious: Yes (Death)
  Sender: FDA-Public Use
  Company Number: US-GILEAD-2010-0033297

PATIENT
  Sex: Female

DRUGS (11)
  1. LETAIRIS [Suspect]
     Indication: PULMONARY ARTERIAL HYPERTENSION
     Route: 048
     Dates: start: 20090306, end: 20101022
  2. TYVASO [Concomitant]
  3. REVATIO [Concomitant]
  4. COUMADIN [Concomitant]
  5. ASPIRIN [Concomitant]
  6. LAXIS [Concomitant]
  7. AMIODARONE [Concomitant]
  8. ZOLOFT [Concomitant]
  9. LEVOTHROID [Concomitant]
  10. IRON [Concomitant]
  11. POTASSIUM CHLORIDE [Concomitant]

REACTIONS (1)
  - DEATH [None]
